FAERS Safety Report 11062580 (Version 1)
Quarter: 2015Q2

REPORT INFORMATION
  Report Type: Report from Study
  Country: JP (occurrence: JP)
  Receive Date: 20150424
  Receipt Date: 20150424
  Transmission Date: 20150821
  Serious: Yes (Hospitalization)
  Sender: FDA-Public Use
  Company Number: JP-009507513-2012SP036694

PATIENT
  Age: 75 Year
  Sex: Female
  Weight: 57 kg

DRUGS (11)
  1. NORVASC [Concomitant]
     Active Substance: AMLODIPINE BESYLATE
     Indication: HYPERTENSION
     Dosage: 2.5 MG, QD, DIVIDED DOSE FREQUENCY UNKNOWN
     Route: 048
     Dates: start: 2007, end: 20110213
  2. SEPAZON [Concomitant]
     Active Substance: CLOXAZOLAM
     Indication: DEPRESSION
     Dosage: 1 MICROGRAM/ 1 DAY; DIVIDED DOSE FREQUENCY UNKNOWN
     Route: 048
     Dates: start: 2007
  3. REBETOL [Suspect]
     Active Substance: RIBAVIRIN
     Indication: CHRONIC HEPATITIS C
     Dosage: 200 MG IN MORNING, 400 MG IN EVENING; DAILY DOSE UNKNOWN
     Route: 048
     Dates: start: 20100226, end: 20110119
  4. FERON [Suspect]
     Active Substance: INTERFERON BETA
     Dosage: 3 MILLION IU, TIW
     Route: 041
     Dates: start: 20101029, end: 20110112
  5. RESTAMIN [Concomitant]
     Active Substance: DIPHENHYDRAMINE
     Indication: ECZEMA
     Dosage: UNK UNK, PRN; DAILY DOSE UNKNOWN
     Route: 061
     Dates: start: 20100602
  6. FERON [Suspect]
     Active Substance: INTERFERON BETA
     Dosage: 6 MILLION IU, TIW
     Route: 041
     Dates: start: 20101027, end: 20101027
  7. MEDICON (DEXTROMETHORPHAN HYDROBROMIDE) [Concomitant]
     Active Substance: DEXTROMETHORPHAN HYDROBROMIDE
     Indication: BRONCHITIS
     Dosage: UNK UNK, PRN; DAILY DOSE UNKNOWN
     Route: 048
     Dates: start: 20100406
  8. HIRUDOID [Concomitant]
     Active Substance: GLYCOSAMINOGLYCANS
     Indication: ECZEMA
     Dosage: UNK UNK, PRN; DAILY DOSE UNKNOWN
     Route: 061
  9. FERON [Suspect]
     Active Substance: INTERFERON BETA
     Indication: CHRONIC HEPATITIS C
     Dosage: 3 MILLION IU, QD
     Route: 041
     Dates: start: 20100226, end: 20100312
  10. FERON [Suspect]
     Active Substance: INTERFERON BETA
     Dosage: 3 MILLION IU, TIW
     Route: 041
     Dates: start: 20100315, end: 20101025
  11. PATANOL [Concomitant]
     Active Substance: OLOPATADINE HYDROCHLORIDE
     Indication: CONJUNCTIVITIS ALLERGIC
     Dosage: UNK UNK, PRN; DAILY DOSE UNKNOWN
     Route: 047
     Dates: start: 20080708

REACTIONS (7)
  - Malaise [Recovered/Resolved]
  - Colitis ischaemic [Recovered/Resolved]
  - Depression [Recovering/Resolving]
  - Decreased appetite [Recovering/Resolving]
  - Proteinuria [Recovered/Resolved]
  - Hypoaesthesia [Recovered/Resolved]
  - Anxiety [Recovering/Resolving]

NARRATIVE: CASE EVENT DATE: 20100305
